FAERS Safety Report 19167705 (Version 1)
Quarter: 2021Q2

REPORT INFORMATION
  Report Type: Spontaneous
  Country: CN (occurrence: CN)
  Receive Date: 20210422
  Receipt Date: 20210422
  Transmission Date: 20210717
  Serious: Yes (Other)
  Sender: FDA-Public Use
  Company Number: CN-ROCHE-2809598

PATIENT
  Age: 38 Year
  Sex: Female

DRUGS (31)
  1. AVASTIN [Suspect]
     Active Substance: BEVACIZUMAB
     Indication: RECTAL ADENOCARCINOMA
     Dosage: DAY 1; 09/JAN/2020, 13/MAR/2020, 28/MAR/2020,11/APR/2020, 27/APR/2020
     Route: 065
  2. OXALIPLATIN. [Concomitant]
     Active Substance: OXALIPLATIN
     Dosage: DAY 1
     Dates: start: 20200827
  3. IRINOTECAN [Concomitant]
     Active Substance: IRINOTECAN
     Dates: start: 20200827
  4. CALCIUM FOLINATE [Concomitant]
     Active Substance: LEUCOVORIN CALCIUM
     Dates: start: 20200427
  5. IRINOTECAN [Concomitant]
     Active Substance: IRINOTECAN
     Dosage: DAY1
     Dates: start: 20200109
  6. 5?FLUOROURACIL [Concomitant]
     Active Substance: FLUOROURACIL
     Dosage: CONTINUOUS INTRAVENOUS INJECTION FOR 48 HOURS
     Route: 042
     Dates: start: 20200427
  7. OXALIPLATIN. [Concomitant]
     Active Substance: OXALIPLATIN
     Dosage: DAY 1, 10?JUL?2019, 31?JUL?2019, 21?AUG?2019
  8. OXALIPLATIN. [Concomitant]
     Active Substance: OXALIPLATIN
     Dosage: DAY 1
     Dates: start: 20200427
  9. IRINOTECAN [Concomitant]
     Active Substance: IRINOTECAN
     Dosage: DAY1,13?MAR?2020, 28?MAR?2020, 11?APR?2020, 27?APR?2020,
  10. FRUQUINTINIB. [Concomitant]
     Active Substance: FRUQUINTINIB
     Indication: RECTAL ADENOCARCINOMA
     Dosage: DAY1 TO DAY 21
     Dates: start: 20200727
  11. OXALIPLATIN. [Concomitant]
     Active Substance: OXALIPLATIN
     Indication: RECTAL ADENOCARCINOMA
     Dosage: DAY 1
     Dates: start: 20190122, end: 201905
  12. IRINOTECAN [Concomitant]
     Active Substance: IRINOTECAN
     Dosage: DAY1
     Dates: start: 20200220
  13. CALCIUM FOLINATE [Concomitant]
     Active Substance: LEUCOVORIN CALCIUM
     Indication: RECTAL ADENOCARCINOMA
     Dosage: DAY1
     Dates: start: 20191218
  14. CALCIUM FOLINATE [Concomitant]
     Active Substance: LEUCOVORIN CALCIUM
     Dates: start: 20200220
  15. XELODA [Suspect]
     Active Substance: CAPECITABINE
     Dosage: DAY 1 TO DAY 14; 10/JUL/2019, 31/JUL/2019, 21/AUG/2019
     Route: 048
  16. AVASTIN [Suspect]
     Active Substance: BEVACIZUMAB
     Route: 065
     Dates: start: 2020
  17. OXALIPLATIN. [Concomitant]
     Active Substance: OXALIPLATIN
     Dosage: DAY 1
     Dates: start: 20200109
  18. OXALIPLATIN. [Concomitant]
     Active Substance: OXALIPLATIN
     Dosage: DAY 1
     Dates: start: 20200220
  19. IRINOTECAN [Concomitant]
     Active Substance: IRINOTECAN
     Indication: RECTAL ADENOCARCINOMA
     Dosage: DAY1
     Dates: start: 20191218
  20. CALCIUM FOLINATE [Concomitant]
     Active Substance: LEUCOVORIN CALCIUM
     Dosage: 13?MAR?2020, 28?MAR?2020, 11?APR?2020
  21. 5?FLUOROURACIL [Concomitant]
     Active Substance: FLUOROURACIL
     Dosage: CONTINUOUS INTRAVENOUS INJECTION FOR 48 HOURS
     Route: 042
     Dates: start: 20200109
  22. 5?FLUOROURACIL [Concomitant]
     Active Substance: FLUOROURACIL
     Indication: RECTAL ADENOCARCINOMA
     Dosage: CONTINUOUS INTRAVENOUS INJECTION FOR 48 HOURS
     Route: 042
     Dates: start: 20191218
  23. 5?FLUOROURACIL [Concomitant]
     Active Substance: FLUOROURACIL
     Dosage: CONTINUOUS INTRAVENOUS INJECTION FOR 48 HOURS, 13?MAR?2020,28?MAR?2020,11?APR?2020
     Route: 042
  24. 5?FLUOROURACIL [Concomitant]
     Active Substance: FLUOROURACIL
     Dosage: CONTINUOUS INTRAVENOUS INJECTION FOR 48 HOURS
     Route: 042
     Dates: start: 20200827
  25. XELODA [Suspect]
     Active Substance: CAPECITABINE
     Indication: RECTAL ADENOCARCINOMA
     Dosage: 2.5 G DIVIDED INTO TWO DOSES
     Route: 048
     Dates: start: 20190122, end: 201905
  26. AVASTIN [Suspect]
     Active Substance: BEVACIZUMAB
     Dosage: DAY 1
     Route: 065
     Dates: start: 20200827
  27. OXALIPLATIN. [Concomitant]
     Active Substance: OXALIPLATIN
     Dates: start: 20191218
  28. OXALIPLATIN. [Concomitant]
     Active Substance: OXALIPLATIN
     Dosage: DAY 1,13?MAR?2020, 28?MAR?2020, 11?APR?2020
  29. CALCIUM FOLINATE [Concomitant]
     Active Substance: LEUCOVORIN CALCIUM
     Dates: start: 20200109
  30. CALCIUM FOLINATE [Concomitant]
     Active Substance: LEUCOVORIN CALCIUM
     Dates: start: 20200827
  31. 5?FLUOROURACIL [Concomitant]
     Active Substance: FLUOROURACIL
     Dosage: CONTINUOUS INTRAVENOUS INJECTION FOR 48 HOURS
     Route: 042
     Dates: start: 20200220

REACTIONS (3)
  - Gastrointestinal disorder [Unknown]
  - Inflammation [Unknown]
  - Myelosuppression [Unknown]
